FAERS Safety Report 6868032-1 (Version None)
Quarter: 2010Q3

REPORT INFORMATION
  Report Type: 
  Country: None (occurrence: None)
  Receive Date: 20100722
  Receipt Date: 20100720
  Transmission Date: 20110219
  Serious: Yes (Other)
  Sender: FDA-Public Use
  Company Number: DE-SANOFI-AVENTIS-2010SA042429

PATIENT
  Sex: Female

DRUGS (1)
  1. MULTAQ [Suspect]
     Indication: PRODUCT USED FOR UNKNOWN INDICATION
     Route: 065

REACTIONS (3)
  - ATRIAL FIBRILLATION [None]
  - CIRCULATORY COLLAPSE [None]
  - SYNCOPE [None]
